FAERS Safety Report 8540329-9 (Version None)
Quarter: 2012Q3

REPORT INFORMATION
  Report Type: 
  Country: None (occurrence: None)
  Receive Date: 20120713
  Receipt Date: 20110607
  Transmission Date: 20120928
  Serious: Yes (Other)
  Sender: FDA-Public Use
  Company Number: 2011AP001188

PATIENT
  Age: 47 Year
  Sex: Male

DRUGS (4)
  1. AMITRIPTYLINE HCL [Suspect]
     Indication: DEPRESSION
  2. RISPERIDONE [Suspect]
     Indication: OFF LABEL USE
  3. RISPERIDONE [Suspect]
     Indication: DEPRESSION
  4. FLUOXETINE [Suspect]
     Indication: DEPRESSION

REACTIONS (5)
  - PITUITARY TUMOUR BENIGN [None]
  - OFF LABEL USE [None]
  - VISUAL FIELD DEFECT [None]
  - SECONDARY HYPOGONADISM [None]
  - HEADACHE [None]
